FAERS Safety Report 7652367-9 (Version None)
Quarter: 2011Q3

REPORT INFORMATION
  Report Type: 
  Country: None (occurrence: None)
  Receive Date: 20110711
  Receipt Date: 20110124
  Transmission Date: 20111222
  Serious: Yes (Hospitalization)
  Sender: FDA-Public Use
  Company Number: UTC-004695

PATIENT
  Age: 52 Year
  Sex: Female
  Weight: 81.6 kg

DRUGS (2)
  1. DIURETICS [Suspect]
  2. REMODULIN [Suspect]
     Dosage: 56.16 UG/KG (0.039 UG/KG, 1 IN 1 MIN), INTRAVENOUS
     Route: 042
     Dates: start: 20091207

REACTIONS (1)
  - SEPSIS [None]
